FAERS Safety Report 13862494 (Version 1)
Quarter: 2017Q3

REPORT INFORMATION
  Report Type: Spontaneous
  Country: US (occurrence: US)
  Receive Date: 20170813
  Receipt Date: 20170813
  Transmission Date: 20171127
  Serious: Yes (Disabling)
  Sender: FDA-Public Use
  Company Number: US-PRESTIGE BRANDS -2024565

PATIENT
  Sex: Female

DRUGS (1)
  1. DEBROX [Suspect]
     Active Substance: CARBAMIDE PEROXIDE
     Route: 001
     Dates: start: 20170719

REACTIONS (2)
  - Deafness [Not Recovered/Not Resolved]
  - Expired product administered [Recovered/Resolved]
